FAERS Safety Report 11858667 (Version 2)
Quarter: 2016Q1

REPORT INFORMATION
  Report Type: Report from Study
  Country: BE (occurrence: BE)
  Receive Date: 20151222
  Receipt Date: 20160121
  Transmission Date: 20160526
  Serious: Yes (Hospitalization)
  Sender: FDA-Public Use
  Company Number: BE-BEH-2015053539

PATIENT
  Age: 56 Year
  Sex: Male

DRUGS (8)
  1. BACTRIM [Concomitant]
     Active Substance: SULFAMETHOXAZOLE\TRIMETHOPRIM
     Dosage: 1 CO 2D/D ON TUESDAY AND FRIDAY
  2. ULTRA MG [Concomitant]
     Dosage: 1 SAC/DAY
  3. PANTOMED [Concomitant]
     Active Substance: DEXPANTHENOL
     Dosage: 1 CO
  4. HIZENTRA [Suspect]
     Active Substance: HUMAN IMMUNOGLOBULIN G
     Indication: WALDENSTROM^S MACROGLOBULINAEMIA
     Dosage: BATCH NUMBER USED IN JULY
  5. HIZENTRA [Suspect]
     Active Substance: HUMAN IMMUNOGLOBULIN G
     Dosage: EACH WEDNESDAY, ALTERNATELY BELLY LEFT AND RIGHT SIDE, RESTART 16-OCT-2015
     Route: 058
  6. HIZENTRA [Suspect]
     Active Substance: HUMAN IMMUNOGLOBULIN G
     Indication: INFECTION
     Dosage: BATCH NUMBER USED IN JULY AND AUGUST
  7. HIZENTRA [Suspect]
     Active Substance: HUMAN IMMUNOGLOBULIN G
     Indication: HYPOGAMMAGLOBULINAEMIA
     Dosage: BATCH NUMBERS USED IN JULY, AUGUST AND SEPTEMBER
  8. ACICLOVIR [Concomitant]
     Active Substance: ACYCLOVIR
     Dosage: 1 CO

REACTIONS (3)
  - Back pain [Recovered/Resolved]
  - Pain in extremity [Recovered/Resolved]
  - Hyperviscosity syndrome [Recovered/Resolved]

NARRATIVE: CASE EVENT DATE: 201508
